FAERS Safety Report 11410584 (Version 1)
Quarter: 2015Q3

REPORT INFORMATION
  Report Type: Spontaneous
  Country: US (occurrence: None)
  Receive Date: 20150820
  Receipt Date: 20150820
  Transmission Date: 20151125
  Serious: No
  Sender: FDA-Public Use
  Company Number: None

PATIENT
  Age: 55 Year
  Sex: Female

DRUGS (1)
  1. ENBREL [Suspect]
     Active Substance: ETANERCEPT
     Indication: RHEUMATOID ARTHRITIS
     Route: 058
     Dates: start: 20150422, end: 20150616

REACTIONS (5)
  - Colitis [None]
  - Liver injury [None]
  - Pneumonia [None]
  - Bronchitis [None]
  - Urinary tract infection [None]

NARRATIVE: CASE EVENT DATE: 20150810
